FAERS Safety Report 6370773-X (Version None)
Quarter: 2009Q3

REPORT INFORMATION
  Report Type: 
  Country: None (occurrence: None)
  Receive Date: 20090923
  Receipt Date: 20070126
  Transmission Date: 20100115
  Serious: Yes (Hospitalization, Other)
  Sender: FDA-Public Use
  Company Number: US-ASTRAZENECA-2006UW24829

PATIENT
  Age: 17757 Day
  Sex: Male
  Weight: 66.7 kg

DRUGS (36)
  1. SEROQUEL [Suspect]
     Indication: INSOMNIA
     Route: 048
     Dates: start: 20020101
  2. SEROQUEL [Suspect]
     Indication: SCHIZOPHRENIA
     Route: 048
     Dates: start: 20020101
  3. SEROQUEL [Suspect]
     Dosage: 25 MG- 400 MG
     Route: 048
  4. SEROQUEL [Suspect]
     Dosage: 25 MG- 400 MG
     Route: 048
  5. HALDOL [Concomitant]
     Dates: start: 19980101, end: 19990101
  6. RISPERDAL [Concomitant]
     Dates: start: 20040101
  7. HUMALOG [Concomitant]
  8. LANTUS [Concomitant]
  9. AZITHROMYCIN [Concomitant]
  10. LEXAPRO [Concomitant]
  11. KLONOPIN [Concomitant]
  12. MORPHINE SULFATE INJ [Concomitant]
  13. ATROPINE, DIPHENOXYLATE [Concomitant]
  14. THIAMINE HCL [Concomitant]
  15. FOLIC ACID [Concomitant]
  16. LISINOPRIL [Concomitant]
  17. FUROSEMIDE [Concomitant]
  18. SPIRONOLACTONE [Concomitant]
  19. GABAPENTIN [Concomitant]
  20. FLEXERIL [Concomitant]
  21. PROTONIX [Concomitant]
  22. MIRTAZAPINE [Concomitant]
  23. ULTRAM [Concomitant]
  24. HYDROCODONE [Concomitant]
  25. DIPHENOXYLATE [Concomitant]
  26. ZOLOFT [Concomitant]
  27. ACETAMINOPHEN [Concomitant]
  28. AMITRIPTYLINE [Concomitant]
  29. CREON [Concomitant]
  30. FOSAMAX [Concomitant]
  31. TUMS [Concomitant]
  32. CYMBALTA [Concomitant]
  33. NOVOLOG [Concomitant]
  34. METHADOSE [Concomitant]
  35. PRILOSEC [Concomitant]
  36. DOCUSATE SODIUM [Concomitant]

REACTIONS (9)
  - DIABETIC COMA [None]
  - DIABETIC HYPEROSMOLAR COMA [None]
  - DIABETIC KETOACIDOSIS [None]
  - DIABETIC ULCER [None]
  - HYPOGLYCAEMIA [None]
  - LIMB DISCOMFORT [None]
  - PANCREATITIS [None]
  - PNEUMONIA [None]
  - TYPE 2 DIABETES MELLITUS [None]
